FAERS Safety Report 4684153-6 (Version None)
Quarter: 2005Q2

REPORT INFORMATION
  Report Type: 
  Country: None (occurrence: None)
  Receive Date: 20050607
  Receipt Date: 20050603
  Transmission Date: 20051028
  Serious: Yes (Life-Threatening)
  Sender: FDA-Public Use
  Company Number: US-GLAXOSMITHKLINE-A0561206A

PATIENT
  Age: 63 Year
  Sex: Male

DRUGS (4)
  1. AVANDIA [Suspect]
     Indication: DIABETES MELLITUS NON-INSULIN-DEPENDENT
     Dates: start: 20040901, end: 20050512
  2. AMARYL [Concomitant]
  3. METFORMIN [Concomitant]
     Dosage: 1000MG TWICE PER DAY
  4. REGLAN [Concomitant]
     Dosage: 10MG TWICE PER DAY

REACTIONS (2)
  - DYSPNOEA [None]
  - FATIGUE [None]
